FAERS Safety Report 22032984 (Version 4)
Quarter: 2023Q4

REPORT INFORMATION
  Report Type: Spontaneous
  Country: US (occurrence: US)
  Receive Date: 20230224
  Receipt Date: 20231110
  Transmission Date: 20240110
  Serious: No
  Sender: FDA-Public Use
  Company Number: US-BRISTOL-MYERS SQUIBB COMPANY-2023-027479

PATIENT
  Age: 61 Year
  Sex: Female

DRUGS (1)
  1. REVLIMID [Suspect]
     Active Substance: LENALIDOMIDE
     Indication: Myelodysplastic syndrome
     Route: 048

REACTIONS (7)
  - Fatigue [Unknown]
  - Muscle spasms [Unknown]
  - Pain in extremity [Unknown]
  - Limb discomfort [Unknown]
  - Nausea [Unknown]
  - Product dose omission issue [Unknown]
  - Contusion [Unknown]
